FAERS Safety Report 15967343 (Version 1)
Quarter: 2019Q1

REPORT INFORMATION
  Report Type: Spontaneous
  Country: US (occurrence: US)
  Receive Date: 20190215
  Receipt Date: 20190215
  Transmission Date: 20190418
  Serious: No
  Sender: FDA-Public Use
  Company Number: US-SA-2019SA041747

PATIENT

DRUGS (2)
  1. ARAVA [Suspect]
     Active Substance: LEFLUNOMIDE
     Route: 065
  2. METHOTREXATE. [Suspect]
     Active Substance: METHOTREXATE

REACTIONS (2)
  - Rash [Unknown]
  - Gastrointestinal toxicity [Unknown]
